FAERS Safety Report 9502847 (Version 1)
Quarter: 2013Q3

REPORT INFORMATION
  Report Type: Report from Study
  Country: GR (occurrence: GR)
  Receive Date: 20130906
  Receipt Date: 20130906
  Transmission Date: 20140515
  Serious: Yes (Hospitalization)
  Sender: FDA-Public Use
  Company Number: GR-AMGEN-GRCCT2013062179

PATIENT
  Age: 67 Year
  Sex: Male
  Weight: 80 kg

DRUGS (7)
  1. PANITUMUMAB [Suspect]
     Indication: GASTRIC CANCER
     Dosage: 480 MG, UNK
     Route: 042
     Dates: start: 20120605
  2. DOCETAXEL [Concomitant]
     Indication: GASTRIC CANCER
     Dosage: 75 MG, UNK
     Route: 042
     Dates: start: 20120605
  3. CISPLATIN [Concomitant]
     Indication: GASTRIC CANCER
     Dosage: 75 MG, UNK
     Route: 042
     Dates: start: 20120605
  4. FLUOROURACIL [Concomitant]
     Indication: GASTRIC CANCER
     Dosage: 2650 MG, UNK
     Route: 042
     Dates: start: 20120605
  5. LEUCOVORIN [Concomitant]
     Indication: GASTRIC CANCER
     Dosage: 750 MG, UNK
     Route: 042
     Dates: start: 20120605
  6. LOSARTAN [Concomitant]
     Indication: HYPERTENSION
     Dosage: 50 MG, UNK
     Route: 048
     Dates: start: 20111111
  7. PROPANOLOL [Concomitant]
     Indication: HYPERTENSION
     Dosage: 25 MG, UNK
     Route: 048
     Dates: start: 20111111

REACTIONS (3)
  - Anaemia [Recovered/Resolved]
  - Neutropenia [Recovered/Resolved]
  - Febrile neutropenia [Recovered/Resolved]
